FAERS Safety Report 9155471 (Version 2)
Quarter: 2013Q1

REPORT INFORMATION
  Report Type: Spontaneous
  Country: ES (occurrence: ES)
  Receive Date: 20130311
  Receipt Date: 20130325
  Transmission Date: 20140127
  Serious: Yes (Other)
  Sender: FDA-Public Use
  Company Number: ES-BAYER-2013-026718

PATIENT
  Age: 82 Year
  Sex: Male
  Weight: 79.4 kg

DRUGS (2)
  1. ACTIRA [Suspect]
     Indication: BRONCHITIS
     Dosage: 400 MG, QD
     Route: 048
     Dates: start: 20100412, end: 20100412
  2. BUDESONIDE W/FORMOTEROL FUMARATE [Suspect]
     Indication: BRONCHITIS
     Dosage: 110 UNK, UNK
     Dates: start: 20100412, end: 20100412

REACTIONS (2)
  - Transient ischaemic attack [Recovered/Resolved]
  - Dysarthria [Recovered/Resolved]
